FAERS Safety Report 16986164 (Version 1)
Quarter: 2019Q4

REPORT INFORMATION
  Report Type: Spontaneous
  Country: US (occurrence: US)
  Receive Date: 20191103
  Receipt Date: 20191103
  Transmission Date: 20200122
  Serious: No
  Sender: FDA-Public Use
  Company Number: US-009507513-1910USA013386

PATIENT
  Sex: Female

DRUGS (1)
  1. NEXPLANON [Suspect]
     Active Substance: ETONOGESTREL
     Dosage: 1 IMPLANT
     Route: 059
     Dates: start: 20190125

REACTIONS (4)
  - Weight increased [Not Recovered/Not Resolved]
  - Mood swings [Not Recovered/Not Resolved]
  - Binge eating [Not Recovered/Not Resolved]
  - Hunger [Not Recovered/Not Resolved]

NARRATIVE: CASE EVENT DATE: 201902
